FAERS Safety Report 7720793-5 (Version None)
Quarter: 2011Q3

REPORT INFORMATION
  Report Type: 
  Country: None (occurrence: None)
  Receive Date: 20110831
  Receipt Date: 20110824
  Transmission Date: 20111222
  Serious: Yes (Hospitalization)
  Sender: FDA-Public Use
  Company Number: US-JNJFOC-20110811369

PATIENT
  Sex: Male

DRUGS (1)
  1. REMICADE [Suspect]
     Indication: AUTOIMMUNE DISORDER
     Route: 042
     Dates: start: 20110101

REACTIONS (4)
  - RASH VESICULAR [None]
  - BLISTER [None]
  - PULMONARY EMBOLISM [None]
  - INTESTINAL PERFORATION [None]
